FAERS Safety Report 6213226-1 (Version None)
Quarter: 2009Q2

REPORT INFORMATION
  Report Type: 
  Country: None (occurrence: None)
  Receive Date: 20090601
  Receipt Date: 20090601
  Transmission Date: 20091009
  Serious: Yes (Other)
  Sender: FDA-Public Use
  Company Number: None

PATIENT
  Age: 40 Year
  Sex: Female
  Weight: 56.6996 kg

DRUGS (1)
  1. YAZ [Suspect]
     Indication: CONTRACEPTION
     Dosage: ONE PILL DAILY PO
     Route: 048
     Dates: start: 20090517, end: 20090525

REACTIONS (13)
  - ABNORMAL DREAMS [None]
  - BREAST PAIN [None]
  - BREAST SWELLING [None]
  - DIZZINESS [None]
  - EAR DISCOMFORT [None]
  - FATIGUE [None]
  - JOINT CREPITATION [None]
  - MYALGIA [None]
  - NIGHT SWEATS [None]
  - POLLAKIURIA [None]
  - THIRST [None]
  - TREMOR [None]
  - VERTIGO [None]
